FAERS Safety Report 25017384 (Version 1)
Quarter: 2025Q1

REPORT INFORMATION
  Report Type: Other
  Country: ES (occurrence: ES)
  Receive Date: 20250227
  Receipt Date: 20250227
  Transmission Date: 20250408
  Serious: Yes (Hospitalization, Other)
  Sender: MACLEODS
  Company Number: None

PATIENT

DRUGS (11)
  1. LEVOFLOXACIN [Suspect]
     Active Substance: LEVOFLOXACIN
     Indication: Febrile neutropenia
     Dosage: 500 MG, Q24H
     Route: 048
     Dates: start: 20190125
  2. CARVEDILOL [Suspect]
     Active Substance: CARVEDILOL
     Indication: Product used for unknown indication
     Dosage: 12.5 MILLIGRAM, QD
     Route: 065
  3. EPLERENONE [Suspect]
     Active Substance: EPLERENONE
     Indication: Product used for unknown indication
     Dosage: 75 MILLIGRAM, QD
     Route: 065
  4. FUROSEMIDE [Suspect]
     Active Substance: FUROSEMIDE
     Indication: Product used for unknown indication
     Dosage: 40 MILLIGRAM, QD
     Route: 065
  5. NOXAFIL [Suspect]
     Active Substance: POSACONAZOLE
     Indication: Antifungal prophylaxis
     Dosage: 100 MG, Q8H (100 MG EVERY 8 HOURS)
     Route: 048
  6. DIGOXIN [Suspect]
     Active Substance: DIGOXIN
     Indication: Cardiac failure congestive
     Dosage: 0.25 MG, Q24H
     Route: 048
     Dates: start: 20181025, end: 20190131
  7. DIGOXIN [Suspect]
     Active Substance: DIGOXIN
     Indication: Atrial fibrillation
  8. RANITIDINE [Concomitant]
     Active Substance: RANITIDINE
     Indication: Product used for unknown indication
     Dosage: 300 MILLIGRAM, QD
     Route: 065
  9. RIVASTIGMINE [Concomitant]
     Active Substance: RIVASTIGMINE
     Indication: Product used for unknown indication
     Dosage: 60 MILLIGRAM, Q8H
     Route: 065
  10. DECITABINE [Concomitant]
     Active Substance: DECITABINE
     Indication: Acute myeloid leukaemia
     Route: 065
  11. BISOPROLOL [Concomitant]
     Active Substance: BISOPROLOL
     Indication: Atrial fibrillation
     Route: 065
     Dates: start: 2017

REACTIONS (5)
  - Bradycardia [Recovered/Resolved]
  - Cardioactive drug level increased [Recovered/Resolved]
  - Atrioventricular block [Recovered/Resolved]
  - Drug interaction [Recovered/Resolved]
  - Toxicity to various agents [Unknown]

NARRATIVE: CASE EVENT DATE: 20190101
